FAERS Safety Report 11771774 (Version 1)
Quarter: 2015Q4

REPORT INFORMATION
  Report Type: Spontaneous
  Country: US (occurrence: None)
  Receive Date: 20151123
  Receipt Date: 20151123
  Transmission Date: 20160304
  Serious: Yes (Disabling, Other)
  Sender: FDA-Public Use
  Company Number: None

PATIENT
  Age: 38 Year
  Sex: Female
  Weight: 68.04 kg

DRUGS (2)
  1. MIRENA [Suspect]
     Active Substance: LEVONORGESTREL
     Dates: start: 20120510, end: 20130307
  2. CENTRUM GUMMIE VITAMINS [Concomitant]

REACTIONS (12)
  - Night sweats [None]
  - Depression [None]
  - Mood swings [None]
  - Alopecia [None]
  - Acne [None]
  - Vomiting [None]
  - Insomnia [None]
  - Parosmia [None]
  - Device use error [None]
  - Breast pain [None]
  - Anxiety [None]
  - Depressed mood [None]

NARRATIVE: CASE EVENT DATE: 20120510
